FAERS Safety Report 5195225-4 (Version None)
Quarter: 2006Q4

REPORT INFORMATION
  Report Type: 
  Country: None (occurrence: None)
  Receive Date: 20061229
  Receipt Date: 20060913
  Transmission Date: 20070319
  Serious: Yes (Other)
  Sender: FDA-Public Use
  Company Number: JP-MERCK-0609USA03182

PATIENT
  Age: 61 Year
  Sex: Male

DRUGS (3)
  1. FOSAMAX [Suspect]
     Route: 048
     Dates: start: 20050818, end: 20050906
  2. PREDNISONE [Concomitant]
     Route: 065
     Dates: start: 20050818, end: 20051109
  3. PREDNISONE [Concomitant]
     Route: 065
     Dates: start: 20051110

REACTIONS (1)
  - RENAL FAILURE ACUTE [None]
